FAERS Safety Report 4370986-2 (Version None)
Quarter: 2004Q2

REPORT INFORMATION
  Report Type: 
  Country: None (occurrence: None)
  Receive Date: 20040603
  Receipt Date: 20040603
  Transmission Date: 20050107
  Serious: Yes (Hospitalization, Disabling)
  Sender: FDA-Public Use
  Company Number: None

PATIENT
  Sex: Male
  Weight: 97.0698 kg

DRUGS (3)
  1. LIPITOR [Suspect]
     Dosage: 80 M G/ONCE ORAL PER DAY; 40 MG
     Route: 048
     Dates: start: 19970201, end: 20040509
  2. LIPITOR [Suspect]
     Dosage: 80 M G/ONCE ORAL PER DAY; 40 MG
     Route: 048
     Dates: start: 20040510, end: 20040520
  3. LIPITOR [Suspect]

REACTIONS (4)
  - ACTIVITIES OF DAILY LIVING IMPAIRED [None]
  - ARTHRALGIA [None]
  - MYOCARDIAL INFARCTION [None]
  - PAIN IN EXTREMITY [None]
